FAERS Safety Report 8286578-9 (Version None)
Quarter: 2012Q1

REPORT INFORMATION
  Report Type: 
  Country: None (occurrence: None)
  Receive Date: 20120323
  Receipt Date: 20120314
  Transmission Date: 20120608
  Serious: Yes (Other)
  Sender: FDA-Public Use
  Company Number: 2012030967

PATIENT
  Age: 54 Year
  Sex: Male
  Weight: 97.0698 kg

DRUGS (10)
  1. HIZENTRA [Suspect]
     Indication: IMMUNODEFICIENCY COMMON VARIABLE
     Dosage: 2G
  2. FLUOXETINE [Concomitant]
  3. MOTRIN [Concomitant]
  4. SYMBICORT [Concomitant]
  5. ALBUTEROL [Concomitant]
  6. ZITHROMAX [Concomitant]
  7. ATIVAN [Concomitant]
  8. HIZENTRA [Suspect]
     Indication: IMMUNODEFICIENCY
     Dosage: 14 G 1X/WEEK, 14 G VIA 4 SITES OVER 1-2 HOURS SUBCUTANEOUS
     Route: 058
     Dates: start: 20120124
  9. HIZENTRA [Suspect]
     Indication: IMMUNODEFICIENCY COMMON VARIABLE
     Dosage: 4 G
  10. FLONASE [Concomitant]

REACTIONS (3)
  - INFUSION SITE ERYTHEMA [None]
  - INFUSION SITE PAIN [None]
  - INFUSION SITE INFECTION [None]
